FAERS Safety Report 4607746-0 (Version None)
Quarter: 2005Q1

REPORT INFORMATION
  Report Type: 
  Country: None (occurrence: None)
  Receive Date: 20050314
  Receipt Date: 20050202
  Transmission Date: 20050727
  Serious: Yes (Other)
  Sender: FDA-Public Use
  Company Number: US-GLAXOSMITHKLINE-A0543520A

PATIENT
  Age: 37 Year
  Sex: Female

DRUGS (2)
  1. WELLBUTRIN [Suspect]
     Indication: DEPRESSION
     Route: 048
     Dates: start: 20040601, end: 20050128
  2. PROZAC [Concomitant]
     Indication: DEPRESSION
     Dosage: 60MG PER DAY
     Dates: start: 20040601

REACTIONS (4)
  - AMNESIA [None]
  - GRAND MAL CONVULSION [None]
  - INSOMNIA [None]
  - TONGUE BITING [None]
